FAERS Safety Report 8132625-4 (Version None)
Quarter: 2012Q1

REPORT INFORMATION
  Report Type: 
  Country: None (occurrence: None)
  Receive Date: 20120213
  Receipt Date: 20120208
  Transmission Date: 20120608
  Serious: Yes (Death)
  Sender: FDA-Public Use
  Company Number: US-GLAXOSMITHKLINE-A0965223A

PATIENT
  Age: 54 Year
  Sex: Female

DRUGS (8)
  1. MORPHINE SULFATE [Concomitant]
  2. OXYCONTIN [Concomitant]
  3. HERCEPTIN [Concomitant]
  4. ZOMETA [Concomitant]
  5. TYKERB [Suspect]
     Indication: PRODUCT USED FOR UNKNOWN INDICATION
     Dosage: 1250MG PER DAY
     Route: 048
  6. LACTULOSE [Concomitant]
  7. DEXAMETHASONE SODIUM PHOSPHATE [Concomitant]
  8. ENOXAPARIN [Concomitant]

REACTIONS (1)
  - DEATH [None]
